FAERS Safety Report 24736948 (Version 2)
Quarter: 2024Q4

REPORT INFORMATION
  Report Type: Spontaneous
  Country: CN (occurrence: CN)
  Receive Date: 20241216
  Receipt Date: 20241218
  Transmission Date: 20250114
  Serious: Yes (Hospitalization, Other)
  Sender: Steriscience PTE
  Company Number: CN-STERISCIENCE B.V.-2024-ST-002103

PATIENT
  Age: 27 Year
  Sex: Female

DRUGS (4)
  1. PIPERACILLIN SODIUM\TAZOBACTAM SODIUM [Suspect]
     Active Substance: PIPERACILLIN SODIUM\TAZOBACTAM SODIUM
     Indication: Infection prophylaxis
     Dosage: UNK
     Route: 065
  2. PIPERACILLIN SODIUM\TAZOBACTAM SODIUM [Suspect]
     Active Substance: PIPERACILLIN SODIUM\TAZOBACTAM SODIUM
     Dosage: ON DAY 9 OF THE HOSPITALISATION
     Route: 065
  3. UNSPECIFIED INGREDIENT [Concomitant]
     Active Substance: UNSPECIFIED INGREDIENT
     Indication: Infection prophylaxis
     Dosage: UNK
     Route: 065
  4. CEFUROXIME [Concomitant]
     Active Substance: CEFUROXIME
     Indication: Infection prophylaxis
     Dosage: UNK
     Route: 065

REACTIONS (1)
  - Autoimmune haemolytic anaemia [None]
